FAERS Safety Report 9931760 (Version 15)
Quarter: 2015Q2

REPORT INFORMATION
  Report Type: Report from Study
  Country: CA (occurrence: CA)
  Receive Date: 20140228
  Receipt Date: 20150518
  Transmission Date: 20150821
  Serious: Yes (Other)
  Sender: FDA-Public Use
  Company Number: CA-ROCHE-1357629

PATIENT
  Age: 44 Year
  Sex: Male
  Weight: 170 kg

DRUGS (6)
  1. METHOTREXATE [Concomitant]
     Active Substance: METHOTREXATE
     Route: 058
  2. SPIRIVA [Concomitant]
     Active Substance: TIOTROPIUM BROMIDE MONOHYDRATE
  3. FOLIC ACID. [Concomitant]
     Active Substance: FOLIC ACID
  4. ADVAIR HFA [Concomitant]
     Active Substance: FLUTICASONE PROPIONATE\SALMETEROL XINAFOATE
  5. ACTEMRA [Suspect]
     Active Substance: TOCILIZUMAB
     Indication: RHEUMATOID ARTHRITIS
     Route: 042
     Dates: start: 20140107
  6. ACTEMRA [Suspect]
     Active Substance: TOCILIZUMAB
     Route: 042
     Dates: start: 20140910

REACTIONS (12)
  - Blood glucose increased [Unknown]
  - Injection site extravasation [Unknown]
  - Dyspnoea [Unknown]
  - Heart rate increased [Unknown]
  - Viral infection [Recovered/Resolved]
  - Weight increased [Unknown]
  - Influenza [Not Recovered/Not Resolved]
  - Diabetes mellitus [Unknown]
  - Asthma [Recovering/Resolving]
  - Upper respiratory tract infection [Recovered/Resolved]
  - Respiratory rate increased [Unknown]
  - Blood pressure diastolic decreased [Unknown]

NARRATIVE: CASE EVENT DATE: 20140226
